FAERS Safety Report 20771241 (Version 1)
Quarter: 2022Q2

REPORT INFORMATION
  Report Type: Spontaneous
  Country: None (occurrence: GB)
  Receive Date: 20220429
  Receipt Date: 20220429
  Transmission Date: 20220720
  Serious: Yes (Other)
  Sender: FDA-Public Use
  Company Number: GB-B.Braun Medical Inc.-2128334

PATIENT
  Age: 29 Year
  Sex: Male

DRUGS (15)
  1. ACETAMINOPHEN [Suspect]
     Active Substance: ACETAMINOPHEN
  2. AMITRIPTYLINE [Suspect]
     Active Substance: AMITRIPTYLINE
  3. BOTULINUM TOXIN TYPE A [Suspect]
     Active Substance: BOTULINUM TOXIN TYPE A
  4. DICLOFENAC SODIUM [Suspect]
     Active Substance: DICLOFENAC SODIUM
  5. DOSULEPIN HYDROCHLORIDE [Suspect]
     Active Substance: DOTHIEPIN HYDROCHLORIDE
  6. IBUPROFEN [Suspect]
     Active Substance: IBUPROFEN
  7. TRAZODONE HYDROCHLORIDE [Suspect]
     Active Substance: TRAZODONE HYDROCHLORIDE
  8. PYRIDOXINE HYDROCHLORIDE [Suspect]
     Active Substance: PYRIDOXINE HYDROCHLORIDE
  9. THIAMINE HYDROCHLORIDE [Suspect]
     Active Substance: THIAMINE HYDROCHLORIDE
  10. IBUPROFEN [Suspect]
     Active Substance: IBUPROFEN
  11. PREGABALIN [Suspect]
     Active Substance: PREGABALIN
  12. PROTHIADEN [Suspect]
     Active Substance: DOTHIEPIN HYDROCHLORIDE
  13. SERTRALINE [Suspect]
     Active Substance: SERTRALINE HYDROCHLORIDE
  14. TOPIRAMATE [Suspect]
     Active Substance: TOPIRAMATE
  15. VALPROATE [Suspect]
     Active Substance: VALPROIC ACID

REACTIONS (6)
  - Head discomfort [Unknown]
  - Neck pain [Unknown]
  - Back pain [Unknown]
  - Pain [Unknown]
  - Migraine [Unknown]
  - Headache [Unknown]
